FAERS Safety Report 20830082 (Version 6)
Quarter: 2024Q4

REPORT INFORMATION
  Report Type: Report from Study
  Country: US (occurrence: US)
  Receive Date: 20220514
  Receipt Date: 20241007
  Transmission Date: 20250115
  Serious: No
  Sender: NOVARTIS
  Company Number: US-NOVARTISTESTPH-NVSC2022US111102

PATIENT
  Sex: Male
  Weight: 80.7 kg

DRUGS (3)
  1. COSENTYX [Suspect]
     Active Substance: SECUKINUMAB
     Indication: Psoriatic arthropathy
     Dosage: 300 MG, QMO
     Route: 058
  2. COSENTYX [Suspect]
     Active Substance: SECUKINUMAB
     Indication: Psoriasis
  3. METHOTREXATE [Suspect]
     Active Substance: METHOTREXATE
     Indication: Psoriasis
     Dosage: 3 DOSAGE FORM, QW
     Route: 065

REACTIONS (7)
  - Osteoarthritis [Unknown]
  - Psoriasis [Unknown]
  - Hepatic enzyme increased [Unknown]
  - Skin lesion [Unknown]
  - Rash [Unknown]
  - Therapeutic product effect incomplete [Recovering/Resolving]
  - Drug ineffective [Unknown]
